FAERS Safety Report 5025860-5 (Version None)
Quarter: 2006Q2

REPORT INFORMATION
  Report Type: 
  Country: None (occurrence: None)
  Receive Date: 20060608
  Receipt Date: 20031203
  Transmission Date: 20061013
  Serious: No
  Sender: FDA-Public Use
  Company Number: 2003-12-0595

PATIENT
  Sex: Male
  Weight: 32 kg

DRUGS (5)
  1. ETHYOL [Suspect]
     Indication: PROPHYLAXIS
     Dates: start: 20030627, end: 20031029
  2. ETHYOL [Suspect]
     Indication: PROPHYLAXIS
     Dates: start: 20030627, end: 20031029
  3. ETHYOL [Suspect]
     Indication: PROPHYLAXIS
     Dates: start: 20030924, end: 20031029
  4. RADIATION THERAPY [Suspect]
     Indication: DRUG USE FOR UNKNOWN INDICATION
     Dosage: OTHER
  5. CISPLATIN [Suspect]

REACTIONS (3)
  - ANAPHYLACTIC REACTION [None]
  - FACE OEDEMA [None]
  - WRONG TECHNIQUE IN DRUG USAGE PROCESS [None]
